FAERS Safety Report 4410435-9 (Version None)
Quarter: 2004Q3

REPORT INFORMATION
  Report Type: 
  Country: None (occurrence: None)
  Receive Date: 20040727
  Receipt Date: 20040713
  Transmission Date: 20050211
  Serious: Yes (Congenital Anomaly, Other)
  Sender: FDA-Public Use
  Company Number: 2004047160

PATIENT
  Age: 1 Day
  Sex: Male
  Weight: 3.045 kg

DRUGS (7)
  1. FLUCONAZOLE [Suspect]
     Indication: ILL-DEFINED DISORDER
     Dosage: 400 MGH
  2. EFAVIRENZ (EFAVIRENZ) [Concomitant]
  3. NEVIRAPINE (NEVIRAPINE) [Concomitant]
  4. METHADONE HCL [Concomitant]
  5. DAPSONE [Concomitant]
  6. PENTAMIDINE (PENTAMIDINE) [Concomitant]
  7. BACTRIM [Concomitant]

REACTIONS (13)
  - BILATERAL HYDRONEPHROSIS [None]
  - CONDUCTIVE DEAFNESS [None]
  - CONVULSION NEONATAL [None]
  - CRANIOSYNOSTOSIS [None]
  - DEFORMITY OF ORBIT [None]
  - DRUG EXPOSURE DURING PREGNANCY [None]
  - DRUG WITHDRAWAL SYNDROME NEONATAL [None]
  - EYELID PTOSIS [None]
  - HEAD DEFORMITY [None]
  - HYPERTELORISM OF ORBIT [None]
  - LIMB MALFORMATION [None]
  - RADIOULNAR SYNOSTOSIS [None]
  - SYNDACTYLY [None]
